FAERS Safety Report 18508142 (Version 3)
Quarter: 2020Q4

REPORT INFORMATION
  Report Type: Report from Study
  Country: FR (occurrence: FR)
  Receive Date: 20201116
  Receipt Date: 20201215
  Transmission Date: 20210114
  Serious: Yes (Hospitalization, Other)
  Sender: FDA-Public Use
  Company Number: FR-INCYTE CORPORATION-2020IN011246

PATIENT

DRUGS (4)
  1. JAKAVI [Suspect]
     Active Substance: RUXOLITINIB
     Dosage: 25 MG DAILY
     Route: 048
     Dates: start: 20200706
  2. JAKAVI [Suspect]
     Active Substance: RUXOLITINIB
     Indication: MYELOFIBROSIS
     Dosage: 20 MG DAILY
     Route: 048
     Dates: start: 20200325, end: 20200706
  3. ELIQUIS [Suspect]
     Active Substance: APIXABAN
     Indication: ANTICOAGULANT THERAPY
     Dosage: 10 MG, BID
     Route: 065
     Dates: start: 20190211
  4. ELIQUIS [Suspect]
     Active Substance: APIXABAN
     Dosage: 5 MG, BID
     Route: 048
     Dates: start: 20200821, end: 20200910

REACTIONS (10)
  - Pulmonary oedema [Recovered/Resolved]
  - Pleural effusion [Unknown]
  - Acute pulmonary oedema [Recovered/Resolved]
  - Splenomegaly [Unknown]
  - Melaena [Recovered/Resolved]
  - Anaemia [Recovered/Resolved]
  - Pallor [Unknown]
  - Gastrointestinal haemorrhage [Recovered/Resolved]
  - General physical health deterioration [Unknown]
  - Dyspnoea [Recovered/Resolved]

NARRATIVE: CASE EVENT DATE: 20200821
